FAERS Safety Report 23937508 (Version 1)
Quarter: 2024Q2

REPORT INFORMATION
  Report Type: Spontaneous
  Country: US (occurrence: None)
  Receive Date: 20240604
  Receipt Date: 20240604
  Transmission Date: 20240716
  Serious: No
  Sender: FDA-Public Use
  Company Number: None

PATIENT
  Age: 44 Year
  Sex: Female
  Weight: 66.2 kg

DRUGS (1)
  1. PEMBROLIZUMAB [Suspect]
     Active Substance: PEMBROLIZUMAB

REACTIONS (5)
  - Anorectal discomfort [None]
  - Diarrhoea [None]
  - Immune-mediated enterocolitis [None]
  - Stress [None]
  - Therapy cessation [None]

NARRATIVE: CASE EVENT DATE: 20240321
